FAERS Safety Report 12310222 (Version 8)
Quarter: 2017Q1

REPORT INFORMATION
  Report Type: Spontaneous
  Country: US (occurrence: US)
  Receive Date: 20160427
  Receipt Date: 20170201
  Transmission Date: 20170428
  Serious: No
  Sender: FDA-Public Use
  Company Number: US-BAYER-2016-067188

PATIENT
  Age: 57 Year
  Sex: Female

DRUGS (5)
  1. LETAIRIS [Concomitant]
     Active Substance: AMBRISENTAN
     Dosage: UNK
  2. VENTAVIS [Suspect]
     Active Substance: ILOPROST
     Indication: PULMONARY ARTERIAL HYPERTENSION
     Dosage: 5 MCG,6-9 X/DAILY
     Route: 055
     Dates: start: 20160212
  3. WARFARIN [Concomitant]
     Active Substance: WARFARIN
     Dosage: UNK
  4. RIOCIGUAT (GUANYLATE CYCLASE STIMULATOR) [Suspect]
     Active Substance: RIOCIGUAT
     Indication: PRODUCT USED FOR UNKNOWN INDICATION
     Dosage: 1.5 MG, TID
     Route: 048
  5. RIOCIGUAT (GUANYLATE CYCLASE STIMULATOR) [Suspect]
     Active Substance: RIOCIGUAT
     Indication: PRODUCT USED FOR UNKNOWN INDICATION
     Dosage: 2.0 MG, TID
     Route: 048

REACTIONS (13)
  - Dyspepsia [Unknown]
  - Nausea [Unknown]
  - Constipation [Unknown]
  - Fatigue [Unknown]
  - Abdominal discomfort [Unknown]
  - Flatulence [Unknown]
  - Headache [Unknown]
  - Oedema peripheral [Unknown]
  - Hyperhidrosis [Unknown]
  - Diarrhoea [Recovered/Resolved]
  - Dizziness [Unknown]
  - Hot flush [Unknown]
  - Dyspnoea [Recovering/Resolving]
